FAERS Safety Report 12183336 (Version 1)
Quarter: 2016Q1

REPORT INFORMATION
  Report Type: Spontaneous
  Country: US (occurrence: None)
  Receive Date: 20160315
  Receipt Date: 20160315
  Transmission Date: 20160526
  Serious: Yes (Disabling)
  Sender: FDA-Public Use
  Company Number: None

PATIENT
  Age: 68 Year
  Sex: Female
  Weight: 48.99 kg

DRUGS (2)
  1. FORTEO [Suspect]
     Active Substance: TERIPARATIDE
     Indication: OSTEOPOROSIS
     Dosage: 20 MCG ONCE DAILY GIVEN INTO/UNDER THE SKIN
     Route: 058
  2. VARIOUS LAXATIVES, INCLUDING OTC + HERBAL [Concomitant]

REACTIONS (1)
  - Food intolerance [None]

NARRATIVE: CASE EVENT DATE: 20150615
